FAERS Safety Report 15830191 (Version 2)
Quarter: 2019Q1

REPORT INFORMATION
  Report Type: Spontaneous
  Country: FR (occurrence: FR)
  Receive Date: 20190115
  Receipt Date: 20190215
  Transmission Date: 20190417
  Serious: Yes (Other)
  Sender: FDA-Public Use
  Company Number: FR-009507513-1901FRA004102

PATIENT
  Sex: Male

DRUGS (2)
  1. CARBIDOPA (+) LEVODOPA [Suspect]
     Active Substance: CARBIDOPA\LEVODOPA
     Indication: MULTIPLE SYSTEM ATROPHY
     Dosage: UNK
     Dates: start: 20181104
  2. SINEMET [Suspect]
     Active Substance: CARBIDOPA\LEVODOPA
     Indication: MULTIPLE SYSTEM ATROPHY
     Dosage: UNK
     Route: 048

REACTIONS (5)
  - Apathy [Recovering/Resolving]
  - Drooling [Recovered/Resolved]
  - Product substitution issue [Unknown]
  - Product availability issue [Unknown]
  - Multiple system atrophy [Unknown]
